FAERS Safety Report 17207660 (Version 1)
Quarter: 2019Q4

REPORT INFORMATION
  Report Type: Spontaneous
  Country: SE (occurrence: SE)
  Receive Date: 20191227
  Receipt Date: 20191227
  Transmission Date: 20200122
  Serious: Yes (Hospitalization)
  Sender: FDA-Public Use
  Company Number: SE-TEVA-2019-SE-1157315

PATIENT
  Age: 30 Year
  Sex: Female

DRUGS (4)
  1. ATARAX [Suspect]
     Active Substance: HYDROXYZINE HYDROCHLORIDE
     Dosage: 3 TABLETS
     Route: 048
     Dates: start: 20180128, end: 20180128
  2. THERALEN [Suspect]
     Active Substance: TRIMEPRAZINE
     Dosage: 1 TABLET
     Route: 048
     Dates: start: 20180128, end: 20180128
  3. OXASCAND [Suspect]
     Active Substance: OXAZEPAM
     Dosage: 3 TABLETS
     Route: 048
     Dates: start: 20180128, end: 20180128
  4. PROPAVAN [Suspect]
     Active Substance: PROPIOMAZINE
     Dosage: 1 TABLET
     Route: 048
     Dates: start: 20180128, end: 20180128

REACTIONS (2)
  - Intentional self-injury [Unknown]
  - Intentional overdose [Unknown]

NARRATIVE: CASE EVENT DATE: 20180128
